FAERS Safety Report 25967935 (Version 1)
Quarter: 2025Q4

REPORT INFORMATION
  Report Type: Report from Study
  Country: CA (occurrence: CA)
  Receive Date: 20251028
  Receipt Date: 20251028
  Transmission Date: 20260118
  Serious: Yes (Other)
  Sender: CELLTRION
  Company Number: CA-CELLTRION INC.-2025CA038982

PATIENT

DRUGS (2)
  1. BEVACIZUMAB [Suspect]
     Active Substance: BEVACIZUMAB
     Indication: Malignant glioma
     Dosage: 10 MG/KG, 1 EVERY 2 WEEKS
     Route: 042
  2. BEVACIZUMAB [Suspect]
     Active Substance: BEVACIZUMAB
     Indication: Glioblastoma
     Dosage: 10 MG/KG, 1 EVERY 2 WEEKS
     Route: 042

REACTIONS (4)
  - Dysania [Recovered/Resolved]
  - Pneumonia [Recovered/Resolved]
  - Somnolence [Recovered/Resolved]
  - Intentional product use issue [Unknown]
